FAERS Safety Report 17604546 (Version 1)
Quarter: 2020Q1

REPORT INFORMATION
  Report Type: Spontaneous
  Country: US (occurrence: US)
  Receive Date: 20200331
  Receipt Date: 20200331
  Transmission Date: 20200409
  Serious: No
  Sender: FDA-Public Use
  Company Number: None

PATIENT
  Age: 49 Year
  Sex: Female
  Weight: 69.75 kg

DRUGS (4)
  1. IBUPROFEN. [Concomitant]
     Active Substance: IBUPROFEN
  2. MAXALT [Concomitant]
     Active Substance: RIZATRIPTAN BENZOATE
  3. NAPROSYN [Concomitant]
     Active Substance: NAPROXEN
  4. ESTRADIOL TRANSDERMAL SYSTEM [Suspect]
     Active Substance: ESTRADIOL
     Indication: MENOPAUSE
     Dosage: ?          QUANTITY:1 PATCH(ES);?
     Route: 062
     Dates: start: 20200309, end: 20200323

REACTIONS (2)
  - Complication associated with device [None]
  - Skin irritation [None]

NARRATIVE: CASE EVENT DATE: 20200323
